FAERS Safety Report 8425959 (Version 2)
Quarter: 2013Q2

REPORT INFORMATION
  Report Type: Spontaneous
  Country: US (occurrence: US)
  Receive Date: 20120224
  Receipt Date: 20130522
  Transmission Date: 20140414
  Serious: No
  Sender: FDA-Public Use
  Company Number: US-ASTRAZENECA-2011SE75291

PATIENT
  Age: 84 Year
  Sex: Male

DRUGS (1)
  1. VIMOVO [Suspect]
     Dosage: 500MG 20MG
     Route: 048

REACTIONS (3)
  - Arthritis [Unknown]
  - Arthralgia [Unknown]
  - Drug dose omission [Unknown]
